FAERS Safety Report 19644952 (Version 1)
Quarter: 2021Q3

REPORT INFORMATION
  Report Type: Spontaneous
  Country: CA (occurrence: CA)
  Receive Date: 20210802
  Receipt Date: 20210802
  Transmission Date: 20211014
  Serious: Yes (Hospitalization)
  Sender: FDA-Public Use
  Company Number: CA-TEVA-2021-CA-1936931

PATIENT
  Age: 78 Year
  Sex: Male
  Weight: 91 kg

DRUGS (16)
  1. INCRUSE ELLIPTA POWDER FOR ORAL INHALATION [Concomitant]
  2. PLAVIX [Concomitant]
     Active Substance: CLOPIDOGREL BISULFATE
  3. SYMBICORT [Concomitant]
     Active Substance: BUDESONIDE\FORMOTEROL FUMARATE DIHYDRATE
  4. TEVA?BISOPROLOL [Suspect]
     Active Substance: BISOPROLOL
     Indication: ARTERIOSCLEROSIS
     Dosage: 5 MILLIGRAM DAILY;
     Route: 048
  5. BRILINTA [Suspect]
     Active Substance: TICAGRELOR
     Dosage: 180 MILLIGRAM DAILY;
     Route: 048
  6. ALTACE [Concomitant]
     Active Substance: RAMIPRIL
  7. CRESTOR [Concomitant]
     Active Substance: ROSUVASTATIN CALCIUM
  8. AVODART [Concomitant]
     Active Substance: DUTASTERIDE
  9. FORXIGA [Concomitant]
     Active Substance: DAPAGLIFLOZIN
  10. PANTOLOC [Concomitant]
     Active Substance: PANTOPRAZOLE SODIUM
  11. JANUVIA [Concomitant]
     Active Substance: SITAGLIPTIN PHOSPHATE
     Route: 065
  12. ZITHROMAX [Concomitant]
     Active Substance: AZITHROMYCIN DIHYDRATE
  13. METFORMIN [Concomitant]
     Active Substance: METFORMIN HYDROCHLORIDE
  14. BRILINTA [Suspect]
     Active Substance: TICAGRELOR
     Indication: ANGINA UNSTABLE
     Route: 048
  15. ASA [Concomitant]
     Active Substance: ASPIRIN
  16. NITROGLYCERIN. [Concomitant]
     Active Substance: NITROGLYCERIN

REACTIONS (1)
  - Bradyarrhythmia [Unknown]
